FAERS Safety Report 6770660-9 (Version None)
Quarter: 2010Q2

REPORT INFORMATION
  Report Type: 
  Country: None (occurrence: None)
  Receive Date: 20100615
  Receipt Date: 20100607
  Transmission Date: 20101027
  Serious: Yes (Hospitalization)
  Sender: FDA-Public Use
  Company Number: US-JNJCH-2010013758

PATIENT
  Sex: Male

DRUGS (1)
  1. VISINE EYE DROPS [Suspect]
     Indication: EYE DISORDER
     Dosage: TEXT:AS DIRECTED ONCE
     Route: 047
     Dates: start: 20030607, end: 20030607

REACTIONS (2)
  - APPLICATION SITE PAIN [None]
  - PRODUCT QUALITY ISSUE [None]
